FAERS Safety Report 8142402-6 (Version None)
Quarter: 2012Q1

REPORT INFORMATION
  Report Type: 
  Country: None (occurrence: None)
  Receive Date: 20120216
  Receipt Date: 20120213
  Transmission Date: 20120608
  Serious: Yes (Other)
  Sender: FDA-Public Use
  Company Number: US-PFIZER INC-2012038851

PATIENT
  Sex: Male
  Weight: 68.027 kg

DRUGS (2)
  1. PRIMATENE MIST [Suspect]
     Indication: ASTHMA
  2. PRIMATENE MIST [Suspect]
     Indication: WHEEZING
     Dosage: 12.5/200 MG,
     Route: 048
     Dates: start: 20120101

REACTIONS (4)
  - DYSPNOEA [None]
  - WRONG TECHNIQUE IN DRUG USAGE PROCESS [None]
  - WHEEZING [None]
  - DRUG INEFFECTIVE [None]
